FAERS Safety Report 7056381-6 (Version None)
Quarter: 2010Q4

REPORT INFORMATION
  Report Type: 
  Country: None (occurrence: None)
  Receive Date: 20101021
  Receipt Date: 20101001
  Transmission Date: 20110411
  Serious: Yes (Other)
  Sender: FDA-Public Use
  Company Number: PHHY2010US66064

PATIENT
  Sex: Female

DRUGS (4)
  1. RECLAST [Suspect]
  2. FOSAMAX [Suspect]
  3. NORVASC [Concomitant]
     Dosage: 5 MG, UNK
  4. PRILOSEC [Concomitant]

REACTIONS (5)
  - DEMENTIA [None]
  - HEADACHE [None]
  - MEMORY IMPAIRMENT [None]
  - MYOCARDIAL INFARCTION [None]
  - OSTEOPENIA [None]
